FAERS Safety Report 24783597 (Version 1)
Quarter: 2024Q4

REPORT INFORMATION
  Report Type: Report from Study
  Country: GB (occurrence: GB)
  Receive Date: 20241227
  Receipt Date: 20241227
  Transmission Date: 20250114
  Serious: Yes (Other)
  Sender: UCB
  Company Number: GB-UCBSA-2024067379

PATIENT
  Sex: Female

DRUGS (2)
  1. CERTOLIZUMAB PEGOL [Suspect]
     Active Substance: CERTOLIZUMAB PEGOL
     Indication: Rheumatoid arthritis
     Dosage: 200 MILLIGRAM, EV 2 WEEKS(QOW)
     Route: 058
     Dates: start: 20211221
  2. NAPROXEN [Concomitant]
     Active Substance: NAPROXEN
     Indication: Analgesic therapy

REACTIONS (2)
  - Lower respiratory tract infection [Unknown]
  - Maternal exposure during pregnancy [Unknown]
